FAERS Safety Report 5920997-8 (Version None)
Quarter: 2008Q4

REPORT INFORMATION
  Report Type: 
  Country: None (occurrence: None)
  Receive Date: 20081016
  Receipt Date: 20081007
  Transmission Date: 20090506
  Serious: Yes (Other)
  Sender: FDA-Public Use
  Company Number: US-JNJFOC-20081001863

PATIENT
  Age: 80 Year
  Sex: Female
  Weight: 56.7 kg

DRUGS (14)
  1. SIMPLY SLEEP NIGHTTIME [Suspect]
     Route: 048
  2. SIMPLY SLEEP NIGHTTIME [Suspect]
     Indication: INSOMNIA
     Route: 048
  3. CARBAMAZEPINE [Concomitant]
  4. LISINOPRIL [Concomitant]
  5. OMEPRAZOLE [Concomitant]
     Dosage: 20 MG 1-2X DAILY
  6. LEVOTHYROXINE SODIUM [Concomitant]
  7. CARTIA XT [Concomitant]
  8. FOSAMAX [Concomitant]
  9. ASPIRIN [Concomitant]
  10. POTASSIUM CHLORIDE [Concomitant]
  11. CALCIUM [Concomitant]
  12. MAGNESIUM SULFATE [Concomitant]
  13. CARVEDILOL [Concomitant]
  14. EXTRA STRENGTH TYLENOL [Concomitant]
     Indication: INSOMNIA

REACTIONS (1)
  - HYPERTENSION [None]
